FAERS Safety Report 18193042 (Version 8)
Quarter: 2021Q3

REPORT INFORMATION
  Report Type: Report from Study
  Country: US (occurrence: US)
  Receive Date: 20200825
  Receipt Date: 20210823
  Transmission Date: 20211014
  Serious: Yes (Other)
  Sender: FDA-Public Use
  Company Number: US-SHIRE-US202027458

PATIENT
  Age: 52 Year
  Sex: Female
  Weight: 74 kg

DRUGS (12)
  1. CUVITRU [Suspect]
     Active Substance: HUMAN IMMUNOGLOBULIN G
     Dosage: 22 GRAM, 1/WEEK
     Route: 058
     Dates: start: 20180719
  2. FLONASE [MOMETASONE FUROATE] [Concomitant]
     Active Substance: MOMETASONE FUROATE
     Indication: PRODUCT USED FOR UNKNOWN INDICATION
  3. SALINE NASAL MIST [Concomitant]
     Route: 065
  4. CUVITRU [Suspect]
     Active Substance: HUMAN IMMUNOGLOBULIN G
     Dosage: 22 GRAM, 1/WEEK
     Route: 058
     Dates: start: 20180918
  5. PROAIR HFA [Concomitant]
     Active Substance: ALBUTEROL SULFATE
     Indication: PRODUCT USED FOR UNKNOWN INDICATION
  6. ZYRTEC [LEVOCABASTINE HYDROCHLORIDE] [Concomitant]
     Active Substance: LEVOCABASTINE HYDROCHLORIDE
     Indication: PRODUCT USED FOR UNKNOWN INDICATION
  7. CUVITRU [Suspect]
     Active Substance: HUMAN IMMUNOGLOBULIN G
     Dosage: 20 GRAM, 1/WEEK
     Route: 058
     Dates: start: 20180918
  8. EPINEPHRINE. [Concomitant]
     Active Substance: EPINEPHRINE
     Indication: PRODUCT USED FOR UNKNOWN INDICATION
  9. CUVITRU [Suspect]
     Active Substance: HUMAN IMMUNOGLOBULIN G
     Indication: IMMUNE SYSTEM DISORDER
     Dosage: 20 GRAM, 1X/WEEK
     Route: 058
     Dates: start: 20180719
  10. ACETAMINOPHEN. [Concomitant]
     Active Substance: ACETAMINOPHEN
     Indication: PRODUCT USED FOR UNKNOWN INDICATION
  11. ALLEGRA [Concomitant]
     Active Substance: FEXOFENADINE HYDROCHLORIDE
     Indication: PRODUCT USED FOR UNKNOWN INDICATION
  12. AMOXICILLIN AND CLAVULANATE POTASSIUM [Concomitant]
     Active Substance: AMOXICILLIN\CLAVULANATE POTASSIUM
     Indication: PRODUCT USED FOR UNKNOWN INDICATION

REACTIONS (12)
  - Staphylococcal infection [Unknown]
  - Sinusitis [Unknown]
  - Infusion site pain [Recovering/Resolving]
  - Dermatitis contact [Unknown]
  - Sinus operation [Unknown]
  - Infection [Unknown]
  - Nausea [Recovering/Resolving]
  - Infusion related reaction [Unknown]
  - Headache [Recovering/Resolving]
  - Device breakage [Unknown]
  - Product dose omission issue [Unknown]
  - Insurance issue [Unknown]

NARRATIVE: CASE EVENT DATE: 20210204
